FAERS Safety Report 7512235-X (Version None)
Quarter: 2011Q2

REPORT INFORMATION
  Report Type: 
  Country: None (occurrence: None)
  Receive Date: 20110531
  Receipt Date: 20110523
  Transmission Date: 20111010
  Serious: Yes (Death, Other)
  Sender: FDA-Public Use
  Company Number: JP-BAYER-2011-035068

PATIENT
  Age: 81 Year
  Sex: Male
  Weight: 50 kg

DRUGS (4)
  1. SUMIFERON [Concomitant]
     Dosage: 3 MIU, OW
     Route: 058
     Dates: start: 20100421, end: 20110420
  2. IMUNACE [Concomitant]
     Dosage: DAILY DOSE 700 KIU
     Route: 042
     Dates: start: 20090809, end: 20110330
  3. NEXAVAR [Suspect]
     Indication: METASTATIC RENAL CELL CARCINOMA
     Dosage: 400 MG, BID
     Route: 048
     Dates: start: 20110407, end: 20110419
  4. SUMIFERON [Concomitant]
     Dosage: 3 MIU, OW
     Route: 058
     Dates: start: 20080414, end: 20090804

REACTIONS (3)
  - ABDOMINAL DISTENSION [None]
  - INTERSTITIAL LUNG DISEASE [None]
  - DYSPNOEA [None]
